FAERS Safety Report 5615461-X (Version None)
Quarter: 2008Q1

REPORT INFORMATION
  Report Type: 
  Country: None (occurrence: None)
  Receive Date: 20080204
  Receipt Date: 20080204
  Transmission Date: 20080703
  Serious: Yes (Other)
  Sender: FDA-Public Use
  Company Number: None

PATIENT
  Age: 63 Year
  Sex: Female
  Weight: 43.5453 kg

DRUGS (1)
  1. ZOCOR [Suspect]
     Indication: BLOOD CHOLESTEROL INCREASED
     Dosage: ONE 40MG TABLET DAILY PO
     Route: 048
     Dates: start: 20080124, end: 20080124

REACTIONS (2)
  - PHARMACEUTICAL PRODUCT COMPLAINT [None]
  - URTICARIA [None]
